FAERS Safety Report 4664812-1 (Version None)
Quarter: 2005Q2

REPORT INFORMATION
  Report Type: 
  Country: None (occurrence: None)
  Receive Date: 20050516
  Receipt Date: 20050502
  Transmission Date: 20051028
  Serious: Yes (Disabling)
  Sender: FDA-Public Use
  Company Number: RS005137-CDN

PATIENT
  Age: 75 Year
  Sex: Male
  Weight: 66 kg

DRUGS (9)
  1. RABEPRAZOLE SODIUM [Suspect]
     Indication: GASTROOESOPHAGEAL REFLUX DISEASE
     Dosage: 20 MG, ORAL
     Route: 048
     Dates: start: 20041201
  2. CASODEX [Concomitant]
  3. ASPIRIN [Concomitant]
  4. ALTACE [Concomitant]
  5. EXELON [Concomitant]
  6. VASOTEC [Concomitant]
  7. ACEBUTOLOL [Concomitant]
  8. EVISTA [Concomitant]
  9. TYLENOL [Concomitant]

REACTIONS (2)
  - CONDITION AGGRAVATED [None]
  - DEMENTIA [None]
